FAERS Safety Report 25705546 (Version 1)
Quarter: 2025Q3

REPORT INFORMATION
  Report Type: Spontaneous
  Country: US (occurrence: None)
  Receive Date: 20250819
  Receipt Date: 20250819
  Transmission Date: 20251020
  Serious: Yes (Death)
  Sender: FDA-CTU
  Company Number: None

PATIENT
  Age: 48 Year
  Sex: Female
  Weight: 104.3 kg

DRUGS (9)
  1. TERIFLUNOMIDE [Suspect]
     Active Substance: TERIFLUNOMIDE
     Indication: Multiple sclerosis
     Dosage: FREQUENCY : DAILY;?
     Route: 048
     Dates: start: 20220526, end: 20250806
  2. BENZONATATE [Concomitant]
     Active Substance: BENZONATATE
  3. Methylphenidate ER 20mg [Concomitant]
  4. TERBINAFINE [Concomitant]
     Active Substance: TERBINAFINE
  5. METRONIDAZOLE [Concomitant]
     Active Substance: METRONIDAZOLE
  6. Metronidazole 375mg [Concomitant]
  7. LEVOFLOXACIN [Concomitant]
     Active Substance: LEVOFLOXACIN
  8. BACLOFEN [Concomitant]
     Active Substance: BACLOFEN
  9. DOXYCYCLINE [Concomitant]
     Active Substance: DOXYCYCLINE

REACTIONS (2)
  - Septic shock [None]
  - Bacteraemia [None]

NARRATIVE: CASE EVENT DATE: 20250808
